FAERS Safety Report 6015800-4 (Version None)
Quarter: 2008Q4

REPORT INFORMATION
  Report Type: 
  Country: None (occurrence: None)
  Receive Date: 20081222
  Receipt Date: 20081210
  Transmission Date: 20090506
  Serious: Yes (Hospitalization, Other)
  Sender: FDA-Public Use
  Company Number: FR-AMGEN-US323923

PATIENT
  Age: 80 Year
  Sex: Male

DRUGS (7)
  1. ENBREL [Suspect]
     Indication: RHEUMATOID ARTHRITIS
     Route: 058
     Dates: start: 20050316
  2. ENBREL [Suspect]
     Route: 058
     Dates: start: 20080923
  3. METHOTREXATE [Suspect]
     Indication: RHEUMATOID ARTHRITIS
     Dosage: UNKNOWN
     Route: 065
  4. METHOTREXATE [Suspect]
     Dosage: UNKNOWN
     Dates: start: 20080909
  5. NEXIUM [Concomitant]
     Dosage: UNKNOWN
     Route: 048
  6. SPECIAFOLDINE [Concomitant]
     Dosage: UNKNOWN
     Route: 048
  7. CORTANCYL [Concomitant]
     Indication: RHEUMATOID ARTHRITIS
     Dosage: UNKNOWN
     Route: 048

REACTIONS (5)
  - ABDOMINAL PAIN [None]
  - GASTROINTESTINAL MOTILITY DISORDER [None]
  - INFLAMMATION [None]
  - LUNG DISORDER [None]
  - RENAL CYST [None]
